FAERS Safety Report 17525445 (Version 1)
Quarter: 2020Q3

REPORT INFORMATION
  Report Type: Report from Study
  Country: None (occurrence: KR)
  Receive Date: 20200310
  Receipt Date: 20200310
  Transmission Date: 20201104
  Serious: Yes (Other)
  Sender: FDA-Public Use
  Company Number: KR-BAUSCH-BL-2020-006455

PATIENT
  Age: 27 Year
  Sex: Female

DRUGS (2)
  1. EPHEDRINE. [Suspect]
     Active Substance: EPHEDRINE
     Indication: WEIGHT INCREASED
     Dosage: INGESTED
     Route: 048
  2. PHENDIMETRAZINE. [Suspect]
     Active Substance: PHENDIMETRAZINE TARTRATE
     Indication: WEIGHT INCREASED
     Dosage: INGESTED
     Route: 048

REACTIONS (3)
  - Pseudomyopia [Recovered/Resolved]
  - Angle closure glaucoma [Recovered/Resolved]
  - Choroidal effusion [Recovered/Resolved]
